FAERS Safety Report 7483430-3 (Version None)
Quarter: 2011Q2

REPORT INFORMATION
  Report Type: 
  Country: None (occurrence: None)
  Receive Date: 20110512
  Receipt Date: 20110512
  Transmission Date: 20111010
  Serious: Yes (Disabling, Other)
  Sender: FDA-Public Use
  Company Number: None

PATIENT
  Age: 65 Year
  Sex: Female

DRUGS (1)
  1. PREDNISONE [Suspect]
     Indication: SUDDEN HEARING LOSS
     Dosage: SEE IMAGE
     Route: 048
     Dates: start: 20110128, end: 20110214

REACTIONS (6)
  - HEADACHE [None]
  - SUDDEN HEARING LOSS [None]
  - DEAFNESS UNILATERAL [None]
  - ABASIA [None]
  - DIZZINESS [None]
  - TINNITUS [None]
